FAERS Safety Report 17644039 (Version 2)
Quarter: 2020Q2

REPORT INFORMATION
  Report Type: Spontaneous
  Country: US (occurrence: US)
  Receive Date: 20200408
  Receipt Date: 20200514
  Transmission Date: 20200713
  Serious: No
  Sender: FDA-Public Use
  Company Number: US-ASTRAZENECA-2020SE38739

PATIENT
  Age: 26762 Day
  Sex: Male
  Weight: 89.4 kg

DRUGS (14)
  1. BYDUREON BCISE [Suspect]
     Active Substance: EXENATIDE
     Indication: TYPE 2 DIABETES MELLITUS
     Route: 058
  2. GLIPIZIDE. [Concomitant]
     Active Substance: GLIPIZIDE
     Indication: DIABETES MELLITUS
  3. MAGNESIUM [Concomitant]
     Active Substance: MAGNESIUM
  4. ASPIRIN. [Concomitant]
     Active Substance: ASPIRIN
  5. D3 1000 [Concomitant]
     Dosage: 1/DAY
  6. ATORASTATIN [Concomitant]
  7. POTASSIUM CIT [Concomitant]
  8. IRBESARTAN/HCTZ [Concomitant]
     Active Substance: HYDROCHLOROTHIAZIDE\IRBESARTAN
     Indication: BLOOD PRESSURE MEASUREMENT
     Dosage: 150-12.5 MG TAB DAILY
     Dates: start: 20191010
  9. TDAP BOOSTER [Concomitant]
     Dates: start: 20170621
  10. METAMUCIL [Concomitant]
     Active Substance: PLANTAGO SEED
  11. IRON [Concomitant]
     Active Substance: IRON
  12. METFORMIN [Concomitant]
     Active Substance: METFORMIN HYDROCHLORIDE
     Indication: DIABETES MELLITUS
  13. FISH OIL [Concomitant]
     Active Substance: FISH OIL
     Dosage: 1/DAY
  14. TAMSUOSIN [Concomitant]
     Indication: POLYURIA
     Dates: start: 20180512

REACTIONS (4)
  - Device malfunction [Unknown]
  - Device leakage [Unknown]
  - Incorrect dose administered by device [Unknown]
  - Drug dose omission by device [Not Recovered/Not Resolved]

NARRATIVE: CASE EVENT DATE: 20200311
